FAERS Safety Report 8997131 (Version 1)
Quarter: 2012Q4

REPORT INFORMATION
  Report Type: Spontaneous
  Country: TW (occurrence: None)
  Receive Date: 20121221
  Receipt Date: 20121221
  Transmission Date: 20130627
  Serious: Yes (Hospitalization)
  Sender: FDA-Public Use
  Company Number: 1534724

PATIENT
  Age: 64 Year
  Sex: Male

DRUGS (2)
  1. OXALIPLATIN [Suspect]
     Indication: ADENOCARCINOMA OF COLON
     Route: 041
  2. OXALIPLATIN [Suspect]
     Indication: ADENOCARCINOMA OF COLON
     Route: 041

REACTIONS (10)
  - Loss of consciousness [None]
  - Cyanosis [None]
  - Cardio-respiratory arrest [None]
  - Aspartate aminotransferase increased [None]
  - Alanine aminotransferase increased [None]
  - Coma [None]
  - Hyperammonaemic encephalopathy [None]
  - Brain oedema [None]
  - Mental status changes [None]
  - Convulsion [None]
